FAERS Safety Report 16259313 (Version 2)
Quarter: 2025Q3

REPORT INFORMATION
  Report Type: Spontaneous
  Country: MY (occurrence: MY)
  Receive Date: 20190501
  Receipt Date: 20250723
  Transmission Date: 20251021
  Serious: Yes (Other)
  Sender: AUROBINDO
  Company Number: MY-AUROBINDO-AUR-APL-2019-024668

PATIENT
  Age: 68 Year
  Sex: Female

DRUGS (1)
  1. GABAPENTIN [Suspect]
     Active Substance: GABAPENTIN
     Indication: Neuralgia
     Dosage: 600 MILLIGRAM, 3 TIMES A DAY
     Route: 065

REACTIONS (6)
  - Frustration tolerance decreased [Unknown]
  - Depression [Unknown]
  - Somnolence [Unknown]
  - Dizziness [Unknown]
  - Loss of personal independence in daily activities [Unknown]
  - Drug intolerance [Unknown]
